FAERS Safety Report 5644127-5 (Version None)
Quarter: 2008Q1

REPORT INFORMATION
  Report Type: 
  Country: None (occurrence: None)
  Receive Date: 20080227
  Receipt Date: 20080220
  Transmission Date: 20080703
  Serious: Yes (Disabling)
  Sender: FDA-Public Use
  Company Number: A0711017A

PATIENT
  Sex: Female

DRUGS (2)
  1. LAPATINIB TABLET (LAPATINIB) [Suspect]
     Indication: BREAST CANCER
     Dosage: 1250 MG/ORAL
     Route: 048
  2. CAPECITABINE [Concomitant]

REACTIONS (3)
  - ARTHRALGIA [None]
  - ARTHROPATHY [None]
  - MUSCULOSKELETAL PAIN [None]
